FAERS Safety Report 6711145-5 (Version None)
Quarter: 2010Q2

REPORT INFORMATION
  Report Type: 
  Country: None (occurrence: None)
  Receive Date: 20100504
  Receipt Date: 20100504
  Transmission Date: 20101027
  Serious: No
  Sender: FDA-Public Use
  Company Number: None

PATIENT
  Age: 76 Year
  Sex: Male

DRUGS (2)
  1. NAFCILLIN [Suspect]
     Indication: STAPHYLOCOCCAL INFECTION
     Dosage: 2 GRAMS Q4HOURS IV
     Route: 042
     Dates: start: 20100330, end: 20100423
  2. NAFCILLIN [Suspect]
     Dosage: 2GRAMS Q4HOURS IV
     Route: 042

REACTIONS (1)
  - PLATELET COUNT DECREASED [None]
